FAERS Safety Report 7205833-4 (Version None)
Quarter: 2010Q4

REPORT INFORMATION
  Report Type: 
  Country: None (occurrence: None)
  Receive Date: 20101231
  Receipt Date: 20101229
  Transmission Date: 20110411
  Serious: Yes (Hospitalization)
  Sender: FDA-Public Use
  Company Number: ES-PFIZER INC-2010164413

PATIENT
  Age: 50 Year
  Sex: Male
  Weight: 66 kg

DRUGS (4)
  1. TEMSIROLIMUS [Suspect]
     Indication: PANCREATIC CARCINOMA
     Dosage: 15 MG, WEEKLY
     Route: 042
     Dates: start: 20100616, end: 20100707
  2. DOCETAXEL [Suspect]
     Indication: PANCREATIC CARCINOMA
     Dosage: 126 MG, EVERY 3 WEEKS
     Route: 042
     Dates: start: 20100615, end: 20100706
  3. RANITIDINE [Concomitant]
     Dosage: UNK
     Dates: start: 20061025
  4. ENZYMES [Concomitant]
     Dosage: UNK
     Dates: start: 20051109

REACTIONS (1)
  - FEBRILE NEUTROPENIA [None]
